FAERS Safety Report 4665959-6 (Version None)
Quarter: 2005Q2

REPORT INFORMATION
  Report Type: 
  Country: None (occurrence: None)
  Receive Date: 20050517
  Receipt Date: 20050517
  Transmission Date: 20051028
  Serious: Yes (Other)
  Sender: FDA-Public Use
  Company Number: None

PATIENT
  Sex: Female
  Weight: 70.3075 kg

DRUGS (2)
  1. LIPITOR [Suspect]
     Indication: BLOOD CHOLESTEROL INCREASED
     Dosage: 40 MG.  DAILY  ORAL
     Route: 048
     Dates: start: 20020419, end: 20050506
  2. LIPITOR [Suspect]
     Indication: HYPERLIPIDAEMIA
     Dosage: 40 MG.  DAILY  ORAL
     Route: 048
     Dates: start: 20020419, end: 20050506

REACTIONS (25)
  - ABDOMINAL HAEMATOMA [None]
  - ABDOMINAL PAIN LOWER [None]
  - AMENORRHOEA [None]
  - ANXIETY [None]
  - ASTHENIA [None]
  - BRONCHITIS [None]
  - DEPRESSION [None]
  - DYSPHAGIA [None]
  - DYSPHONIA [None]
  - FATIGUE [None]
  - FEELING ABNORMAL [None]
  - FEELING OF DESPAIR [None]
  - GASTROOESOPHAGEAL REFLUX DISEASE [None]
  - MENORRHAGIA [None]
  - MENSTRUATION IRREGULAR [None]
  - MUSCLE TIGHTNESS [None]
  - MUSCULOSKELETAL STIFFNESS [None]
  - MYALGIA [None]
  - NEPHROLITHIASIS [None]
  - PHARYNGEAL OEDEMA [None]
  - SENSATION OF FOREIGN BODY [None]
  - SPEECH DISORDER [None]
  - THERAPY NON-RESPONDER [None]
  - VASCULAR RUPTURE [None]
  - WHEEZING [None]
